FAERS Safety Report 7131987-4 (Version None)
Quarter: 2010Q4

REPORT INFORMATION
  Report Type: 
  Country: None (occurrence: None)
  Receive Date: 20101124
  Receipt Date: 20101124
  Transmission Date: 20110411
  Serious: Yes (Other)
  Sender: FDA-Public Use
  Company Number: None

PATIENT
  Sex: Female

DRUGS (3)
  1. BYSTOLIC [Suspect]
     Indication: HYPERTENSION
     Dosage: 5 MCGS DAILY ORALLY
     Route: 048
     Dates: start: 20101104, end: 20101109
  2. MICARDIS [Concomitant]
  3. HYDRODIURIC [Concomitant]

REACTIONS (6)
  - CHEST DISCOMFORT [None]
  - DYSPHONIA [None]
  - DYSPNOEA [None]
  - HEART RATE DECREASED [None]
  - JOINT SWELLING [None]
  - WHEEZING [None]
